FAERS Safety Report 12891689 (Version 1)
Quarter: 2016Q4

REPORT INFORMATION
  Report Type: Spontaneous
  Country: CA (occurrence: CA)
  Receive Date: 20161028
  Receipt Date: 20161028
  Transmission Date: 20170207
  Serious: Yes (Disabling)
  Sender: FDA-Public Use
  Company Number: CA-AMGEN-CANSP2016147125

PATIENT
  Sex: Female

DRUGS (1)
  1. PROLIA [Suspect]
     Active Substance: DENOSUMAB
     Indication: OSTEOPOROSIS
     Dosage: UNK
     Route: 058

REACTIONS (9)
  - Drug interaction [Unknown]
  - Fatigue [Unknown]
  - Constipation [Unknown]
  - Influenza like illness [Unknown]
  - Bone pain [Unknown]
  - Palpitations [Unknown]
  - Dyspepsia [Unknown]
  - Gastrooesophageal reflux disease [Unknown]
  - Dyspnoea [Unknown]
